FAERS Safety Report 4469291-5 (Version None)
Quarter: 2004Q4

REPORT INFORMATION
  Report Type: 
  Country: None (occurrence: None)
  Receive Date: 20041008
  Receipt Date: 20030919
  Transmission Date: 20050328
  Serious: No
  Sender: FDA-Public Use
  Company Number: US-BRISTOL-MYERS SQUIBB COMPANY-12389508

PATIENT
  Age: 63 Year
  Sex: Female

DRUGS (2)
  1. AVAPRO [Suspect]
  2. TOPROL-XL [Concomitant]

REACTIONS (2)
  - STOMACH DISCOMFORT [None]
  - URINE OUTPUT DECREASED [None]
